FAERS Safety Report 4638351-8 (Version None)
Quarter: 2005Q2

REPORT INFORMATION
  Report Type: 
  Country: None (occurrence: None)
  Receive Date: 20050415
  Receipt Date: 20050328
  Transmission Date: 20051028
  Serious: No
  Sender: FDA-Public Use
  Company Number: EWC050443404

PATIENT
  Age: 18 Year
  Sex: Male

DRUGS (2)
  1. ZYPREXA [Suspect]
     Indication: SCHIZOPHRENIA
     Dosage: 10 MG/ 1 IN THE EVENING
     Dates: start: 20050309
  2. DIAZEPAM [Concomitant]

REACTIONS (1)
  - NEUTROPHIL COUNT DECREASED [None]
